FAERS Safety Report 5537706-7 (Version None)
Quarter: 2007Q4

REPORT INFORMATION
  Report Type: 
  Country: None (occurrence: None)
  Receive Date: 20071207
  Receipt Date: 20071126
  Transmission Date: 20080405
  Serious: Yes (Death, Hospitalization)
  Sender: FDA-Public Use
  Company Number: IT-JNJFOC-20071004881

PATIENT
  Sex: Female

DRUGS (8)
  1. FENTANYL [Suspect]
     Indication: DRUG USE FOR UNKNOWN INDICATION
     Route: 062
  2. BORTEZOMIB [Suspect]
     Indication: MULTIPLE MYELOMA
     Route: 065
  3. MELPHALAN [Suspect]
     Indication: DRUG USE FOR UNKNOWN INDICATION
     Route: 065
  4. PREDNISONE TAB [Suspect]
     Indication: DRUG USE FOR UNKNOWN INDICATION
     Route: 065
  5. LANSOPRAZOLE [Concomitant]
     Route: 065
  6. VASERETIC [Concomitant]
     Route: 065
  7. ASPIRIN [Concomitant]
     Route: 065
  8. PLASIL [Concomitant]
     Route: 065

REACTIONS (6)
  - CEREBRAL ISCHAEMIA [None]
  - COGNITIVE DISORDER [None]
  - DEPRESSED LEVEL OF CONSCIOUSNESS [None]
  - LEFT VENTRICULAR FAILURE [None]
  - PSYCHOMOTOR HYPERACTIVITY [None]
  - SENSORY DISTURBANCE [None]
